FAERS Safety Report 5883855-3 (Version None)
Quarter: 2008Q3

REPORT INFORMATION
  Report Type: 
  Country: None (occurrence: None)
  Receive Date: 20080915
  Receipt Date: 20080909
  Transmission Date: 20090109
  Serious: Yes (Other)
  Sender: FDA-Public Use
  Company Number: DE-AVENTIS-200812407DE

PATIENT

DRUGS (2)
  1. CLEXANE MULTI INJEKTIONSLOESUNG [Suspect]
     Indication: THROMBOSIS PROPHYLAXIS
     Dosage: DOSE: NOT REPORTED
     Route: 058
     Dates: start: 20080301, end: 20080904
  2. HEPARIN [Concomitant]
     Indication: DRUG USE FOR UNKNOWN INDICATION

REACTIONS (1)
  - SEROMA [None]
